FAERS Safety Report 6343072-X (Version None)
Quarter: 2009Q3

REPORT INFORMATION
  Report Type: 
  Country: None (occurrence: None)
  Receive Date: 20090908
  Receipt Date: 20090831
  Transmission Date: 20100115
  Serious: Yes (Hospitalization)
  Sender: FDA-Public Use
  Company Number: US-ASTRAZENECA-2008UW27986

PATIENT
  Age: 54 Year
  Sex: Female
  Weight: 72.6 kg

DRUGS (6)
  1. METOPROLOL SUCCINATE [Suspect]
     Indication: HYPERTENSION
     Route: 048
  2. PLAVIX [Concomitant]
  3. LEVOXYL [Concomitant]
  4. PRAVASTATIN [Concomitant]
  5. ASPIRIN [Concomitant]
     Route: 048
  6. ZYRTEC [Concomitant]
     Route: 048

REACTIONS (6)
  - CARDIAC FAILURE CONGESTIVE [None]
  - FEELING ABNORMAL [None]
  - HEADACHE [None]
  - HEART VALVE INCOMPETENCE [None]
  - HYPERTENSION [None]
  - TENSION HEADACHE [None]
